FAERS Safety Report 17663374 (Version 4)
Quarter: 2020Q3

REPORT INFORMATION
  Report Type: Spontaneous
  Country: JP (occurrence: JP)
  Receive Date: 20200414
  Receipt Date: 20200813
  Transmission Date: 20201102
  Serious: Yes (Life-Threatening, Hospitalization, Other)
  Sender: FDA-Public Use
  Company Number: JP-AMGEN-JPNSP2020060035

PATIENT
  Age: 87 Year
  Sex: Female

DRUGS (15)
  1. LUDIOMIL [Concomitant]
     Active Substance: MAPROTILINE HYDROCHLORIDE
     Indication: DEPRESSION
  2. TAKECAB [Concomitant]
     Active Substance: VONOPRAZAN FUMARATE
     Indication: CONSTIPATION
  3. ZACRAS [Concomitant]
     Active Substance: AMLODIPINE BESYLATE\AZILSARTAN
     Indication: ANGINA PECTORIS
     Dosage: 1 DOSAGE FORM, QD
     Dates: start: 20180903, end: 20200410
  4. TAKECAB [Concomitant]
     Active Substance: VONOPRAZAN FUMARATE
     Indication: CHRONIC GASTRITIS
  5. DEPAS [DICLOFENAC;DICYCLOVERINE HYDROCHLORIDE] [Concomitant]
     Indication: INSOMNIA
     Dosage: 0.5 MILLIGRAM, BID
     Dates: start: 20160405, end: 20200410
  6. DOGMATYL [Concomitant]
     Active Substance: SULPIRIDE
     Indication: DEPRESSION
  7. DEPAS [DICLOFENAC;DICYCLOVERINE HYDROCHLORIDE] [Concomitant]
     Indication: DEPRESSION
  8. AMOBAN [Concomitant]
     Active Substance: ZOPICLONE
     Indication: DEPRESSION
  9. DOGMATYL [Concomitant]
     Active Substance: SULPIRIDE
     Indication: INSOMNIA
     Dosage: 50 MILLIGRAM, TID
     Dates: start: 20160405, end: 20160410
  10. EVENITY [Suspect]
     Active Substance: ROMOSOZUMAB-AQQG
     Indication: OSTEOPOROSIS
     Dosage: 210 MILLIGRAM
     Route: 058
     Dates: start: 20200407, end: 20200409
  11. BEOVA [Concomitant]
     Indication: HYPERTONIC BLADDER
     Dosage: 50 MILLIGRAM, QD
     Dates: start: 20190412, end: 20200410
  12. AMOBAN [Concomitant]
     Active Substance: ZOPICLONE
     Indication: INSOMNIA
     Dosage: 7.5 MILLIGRAM, QD
     Dates: start: 20160405, end: 20200410
  13. TAKECAB [Concomitant]
     Active Substance: VONOPRAZAN FUMARATE
     Indication: GASTROOESOPHAGEAL REFLUX DISEASE
     Dosage: 20 MILLIGRAM, QD
     Dates: start: 20150706, end: 20200410
  14. LUDIOMIL [Concomitant]
     Active Substance: MAPROTILINE HYDROCHLORIDE
     Indication: INSOMNIA
     Dosage: 25 MILLIGRAM, QD
     Dates: start: 20160405, end: 20200410
  15. ZACRAS [Concomitant]
     Active Substance: AMLODIPINE BESYLATE\AZILSARTAN
     Indication: HYPERTENSION

REACTIONS (1)
  - Immune thrombocytopenia [Unknown]

NARRATIVE: CASE EVENT DATE: 20200409
